FAERS Safety Report 5091293-9 (Version None)
Quarter: 2006Q3

REPORT INFORMATION
  Report Type: 
  Country: None (occurrence: None)
  Receive Date: 20060825
  Receipt Date: 20060825
  Transmission Date: 20061208
  Serious: Yes (Other)
  Sender: FDA-Public Use
  Company Number: None

PATIENT
  Age: 62 Year
  Sex: Female

DRUGS (1)
  1. ANAGRELIDE HCL [Suspect]
     Indication: ESSENTIAL THROMBOCYTHAEMIA
     Dosage: 0.5 MG  5 X DAY PO
     Route: 048
     Dates: start: 20050101

REACTIONS (2)
  - PHARMACEUTICAL PRODUCT COMPLAINT [None]
  - PLATELET COUNT INCREASED [None]
